FAERS Safety Report 4407489-2 (Version None)
Quarter: 2004Q3

REPORT INFORMATION
  Report Type: 
  Country: None (occurrence: None)
  Receive Date: 20040721
  Receipt Date: 20040709
  Transmission Date: 20050211
  Serious: Yes (Hospitalization)
  Sender: FDA-Public Use
  Company Number: 2004-DE-03808GD (0)

PATIENT
  Age: 35 Year
  Sex: Male

DRUGS (4)
  1. THEOPHYLLINE [Suspect]
     Indication: LUNG DISORDER
     Dosage: 400 MG, SEE TEXT
  2. THEOPHYLLINE [Suspect]
     Indication: MUSCLE SPASTICITY
     Dosage: 400 MG, SEE TEXT
  3. PREDNISOLONE [Suspect]
     Indication: LUNG DISORDER
  4. PREDNISOLONE [Suspect]
     Indication: MUSCLE SPASTICITY

REACTIONS (2)
  - DRUG INEFFECTIVE [None]
  - LEUKOCYTOSIS [None]
